FAERS Safety Report 19476162 (Version 1)
Quarter: 2021Q2

REPORT INFORMATION
  Report Type: Spontaneous
  Country: US (occurrence: US)
  Receive Date: 20210630
  Receipt Date: 20210630
  Transmission Date: 20210717
  Serious: Yes (Other)
  Sender: FDA-Public Use
  Company Number: US-GLAXOSMITHKLINE-US2021AMR138403

PATIENT
  Sex: Female

DRUGS (1)
  1. ZEJULA [Suspect]
     Active Substance: NIRAPARIB
     Indication: OVARIAN CANCER STAGE IV
     Dosage: UNK
     Dates: start: 2021

REACTIONS (4)
  - Full blood count decreased [Unknown]
  - Neoplasm progression [Unknown]
  - Malaise [Unknown]
  - Carbohydrate antigen 125 increased [Unknown]
